FAERS Safety Report 10633934 (Version 2)
Quarter: 2014Q4

REPORT INFORMATION
  Report Type: Spontaneous
  Country: CO (occurrence: CO)
  Receive Date: 20141205
  Receipt Date: 20141217
  Transmission Date: 20150529
  Serious: Yes (Hospitalization, Other)
  Sender: FDA-Public Use
  Company Number: CO-NOVOPROD-430776

PATIENT
  Sex: Female
  Weight: 63 kg

DRUGS (2)
  1. NOVORAPID [Suspect]
     Active Substance: INSULIN ASPART
     Indication: TYPE 1 DIABETES MELLITUS
     Dosage: 12 IU, QD (PREPRANDIAL, 36 MG)
     Route: 058
     Dates: start: 20141020
  2. LANTUS [Suspect]
     Active Substance: INSULIN GLARGINE
     Indication: TYPE 1 DIABETES MELLITUS
     Dosage: 42 IU, QD
     Route: 058
     Dates: start: 20141020

REACTIONS (3)
  - Abortion spontaneous [Unknown]
  - Blood glucose increased [Unknown]
  - Exposure during pregnancy [Recovered/Resolved]

NARRATIVE: CASE EVENT DATE: 20141020
